FAERS Safety Report 11361985 (Version 1)
Quarter: 2015Q3

REPORT INFORMATION
  Report Type: Spontaneous
  Country: GB (occurrence: GB)
  Receive Date: 20150810
  Receipt Date: 20150810
  Transmission Date: 20151125
  Serious: Yes (Other)
  Sender: FDA-Public Use
  Company Number: GB-JNJFOC-20150801728

PATIENT
  Age: 18 Year
  Sex: Female
  Weight: 83 kg

DRUGS (1)
  1. ORTHO EVRA [Suspect]
     Active Substance: ETHINYL ESTRADIOL\NORELGESTROMIN
     Indication: CONTRACEPTION
     Route: 062
     Dates: start: 20150707, end: 20150711

REACTIONS (5)
  - Application site vesicles [Recovering/Resolving]
  - Application site laceration [Recovering/Resolving]
  - Application site inflammation [Recovering/Resolving]
  - Application site pruritus [Recovering/Resolving]
  - Application site discomfort [Recovering/Resolving]

NARRATIVE: CASE EVENT DATE: 20150711
